FAERS Safety Report 4380727-0 (Version None)
Quarter: 2004Q2

REPORT INFORMATION
  Report Type: 
  Country: None (occurrence: None)
  Receive Date: 20040618
  Receipt Date: 20040607
  Transmission Date: 20050107
  Serious: Yes (Other)
  Sender: FDA-Public Use
  Company Number: PHBS2004BR07749

PATIENT
  Age: 25 Year
  Sex: Male

DRUGS (8)
  1. CARBAMAZEPINE [Suspect]
     Route: 065
  2. BACLOFEN [Suspect]
     Route: 065
  3. TRIHEXYPHENIDYL HCL [Suspect]
     Route: 065
  4. CLONAZEPAM [Suspect]
     Route: 065
  5. TETRABENAZINE [Concomitant]
     Route: 065
  6. FLURAZEPAM [Concomitant]
     Route: 065
  7. CLOBAZAM [Concomitant]
  8. PIMOZIDE [Concomitant]
     Route: 065

REACTIONS (3)
  - BLOOD CREATINE PHOSPHOKINASE INCREASED [None]
  - DYSTONIA [None]
  - VIRAL INFECTION [None]
